FAERS Safety Report 6558490-4 (Version None)
Quarter: 2010Q1

REPORT INFORMATION
  Report Type: 
  Country: None (occurrence: None)
  Receive Date: 20100129
  Receipt Date: 20100122
  Transmission Date: 20100710
  Serious: Yes (Life-Threatening)
  Sender: FDA-Public Use
  Company Number: GXKR2010NL01081

PATIENT
  Age: 28 Year
  Sex: Male

DRUGS (3)
  1. CLOZAPINE [Suspect]
     Indication: SCHIZOPHRENIA
     Dosage: 500 MG, UNK
  2. LORAZEPAM [Concomitant]
  3. DEXETIMIDE [Concomitant]

REACTIONS (19)
  - ABDOMINAL DISTENSION [None]
  - ABDOMINAL PAIN [None]
  - COLITIS ISCHAEMIC [None]
  - COLONIC PSEUDO-OBSTRUCTION [None]
  - CONSTIPATION [None]
  - ENTERAL NUTRITION [None]
  - FAECES HARD [None]
  - GASTROINTESTINAL HAEMORRHAGE [None]
  - GASTROINTESTINAL HYPOMOTILITY [None]
  - GASTROINTESTINAL NECROSIS [None]
  - INFLAMMATION [None]
  - MECHANICAL VENTILATION [None]
  - MUCOUS MEMBRANE DISORDER [None]
  - MULTI-ORGAN FAILURE [None]
  - NAUSEA [None]
  - PAIN [None]
  - RENAL IMPAIRMENT [None]
  - SEPTIC SHOCK [None]
  - VOMITING [None]
